FAERS Safety Report 9254066 (Version 2)
Quarter: 2013Q2

REPORT INFORMATION
  Report Type: Spontaneous
  Country: FR (occurrence: FR)
  Receive Date: 20130425
  Receipt Date: 20130606
  Transmission Date: 20140414
  Serious: Yes (Other)
  Sender: FDA-Public Use
  Company Number: FR-ROCHE-1218003

PATIENT
  Age: 78 Year
  Sex: Female

DRUGS (11)
  1. LUCENTIS [Suspect]
     Indication: AGE-RELATED MACULAR DEGENERATION
     Route: 050
     Dates: start: 20110315
  2. LUCENTIS [Suspect]
     Route: 050
     Dates: start: 201201
  3. LUCENTIS [Suspect]
     Route: 050
     Dates: start: 201204
  4. LODALES [Concomitant]
     Route: 065
  5. SOTALEX [Concomitant]
  6. CORVASAL [Concomitant]
  7. AMLOR [Concomitant]
  8. KARDEGIC [Concomitant]
  9. LUMIGAN [Concomitant]
     Dosage: 0.1 MG/ML
     Route: 065
  10. CARTEOLOL HYDROCHLORIDE [Concomitant]
     Route: 065
  11. CELECTOL [Concomitant]
     Route: 065
     Dates: start: 20130404

REACTIONS (2)
  - Arrhythmia supraventricular [Unknown]
  - Malaise [Unknown]
